FAERS Safety Report 6007344-0 (Version None)
Quarter: 2008Q4

REPORT INFORMATION
  Report Type: 
  Country: None (occurrence: None)
  Receive Date: 20081217
  Receipt Date: 20080312
  Transmission Date: 20090506
  Serious: No
  Sender: FDA-Public Use
  Company Number: US-ASTRAZENECA-2008UW05069

PATIENT
  Age: 68 Year
  Sex: Female

DRUGS (7)
  1. CRESTOR [Suspect]
     Indication: BLOOD CHOLESTEROL INCREASED
     Route: 048
     Dates: start: 20080101
  2. CRESTOR [Suspect]
     Route: 048
  3. CRESTOR [Suspect]
     Route: 048
  4. PROPRANOLOL [Concomitant]
  5. DOXYCILIN [Concomitant]
  6. ALPRAZOLAM [Concomitant]
  7. EXCEDRIN [Concomitant]

REACTIONS (4)
  - ANAL INFLAMMATION [None]
  - BLOOD PRESSURE INCREASED [None]
  - CONSTIPATION [None]
  - HEADACHE [None]
